FAERS Safety Report 5119975-0 (Version None)
Quarter: 2006Q3

REPORT INFORMATION
  Report Type: 
  Country: None (occurrence: None)
  Receive Date: 20060929
  Receipt Date: 20060919
  Transmission Date: 20061208
  Serious: Yes (Hospitalization)
  Sender: FDA-Public Use
  Company Number: 230055

PATIENT
  Age: 72 Year
  Sex: Male

DRUGS (3)
  1. ACTIVASE [Suspect]
     Indication: CEREBRAL INFARCTION
     Dosage: 39 MG, SINGLE, INTRAVENOUS
     Route: 042
     Dates: start: 20060511, end: 20060511
  2. ASPIRIN [Concomitant]
  3. RADICUT (EDARAVONE) [Concomitant]

REACTIONS (3)
  - DEPRESSED LEVEL OF CONSCIOUSNESS [None]
  - HYPONATRAEMIA [None]
  - MALAISE [None]
